FAERS Safety Report 21293457 (Version 1)
Quarter: 2022Q3

REPORT INFORMATION
  Report Type: Spontaneous
  Country: US (occurrence: US)
  Receive Date: 20220905
  Receipt Date: 20220905
  Transmission Date: 20221026
  Serious: No
  Sender: FDA-Public Use
  Company Number: US-ALKEM LABORATORIES LIMITED-JP-ALKEM-2019-09186

PATIENT

DRUGS (2)
  1. TACROLIMUS [Suspect]
     Active Substance: TACROLIMUS
     Indication: Product used for unknown indication
     Dosage: 2 MILLIGRAM
     Route: 065
  2. VORICONAZOLE [Suspect]
     Active Substance: VORICONAZOLE
     Indication: Product used for unknown indication
     Dosage: 200 MILLIGRAM, TWICE A DAY, DAYS 0 TO 5
     Route: 048

REACTIONS (2)
  - Drug interaction [Unknown]
  - Drug level increased [Recovered/Resolved]
